FAERS Safety Report 9177330 (Version 2)
Quarter: 2013Q2

REPORT INFORMATION
  Report Type: Spontaneous
  Country: US (occurrence: None)
  Receive Date: 20120531
  Receipt Date: 20130130
  Transmission Date: 20140414
  Serious: Yes (Other)
  Sender: FDA-Public Use
  Company Number: US201201007466

PATIENT
  Sex: Female

DRUGS (9)
  1. BYETTA (EXENATIDE) PEN.DISPOSABLE [Suspect]
     Indication: TYPE 2 DIABETES MELLITUS
     Route: 058
     Dates: start: 200808
  2. GLIPIZIDE (GLIPIZIDE) [Concomitant]
  3. DIOVAN (VALSARTAN) [Concomitant]
  4. LISINOPRIL (LISINOPRIL) [Concomitant]
  5. GLIBENCLAMIDE (GLIBENCLAMIDE) [Concomitant]
  6. LEVOTHYROXINE (LEVOTHYROXINE) [Concomitant]
  7. ADVAIR (FLUTICASONE PROPIONATE, SALMETEROL XINAFOATE) [Concomitant]
  8. HYDROCHLOROTHIAZIDE (HYDROCHLOROTHIAZIDE) [Concomitant]
  9. GEODON (ZIPRASIDONE HYDROCHLORIDE) [Concomitant]

REACTIONS (2)
  - Renal failure [None]
  - Renal failure chronic [None]
